FAERS Safety Report 9523989 (Version 1)
Quarter: 2013Q3

REPORT INFORMATION
  Report Type: Spontaneous
  Country: US (occurrence: None)
  Receive Date: 20130912
  Receipt Date: 20130912
  Transmission Date: 20140515
  Serious: No
  Sender: FDA-Public Use
  Company Number: None

PATIENT
  Age: 58 Year
  Sex: Female

DRUGS (2)
  1. OPTIRAY 320 [Suspect]
     Indication: CATHETERISATION CARDIAC
     Dosage: INTRAVENOUS
     Route: 042
     Dates: start: 20130906
  2. BRILINTA 90 MG TABS [Suspect]
     Indication: STENT PLACEMENT
     Dosage: 1 TABLET  BID  RECTAL
     Route: 054
     Dates: start: 20130907, end: 20130910

REACTIONS (1)
  - Swelling face [None]
